FAERS Safety Report 4664829-7 (Version None)
Quarter: 2005Q2

REPORT INFORMATION
  Report Type: 
  Country: None (occurrence: None)
  Receive Date: 20050517
  Receipt Date: 20050517
  Transmission Date: 20051028
  Serious: Yes (Life-Threatening, Hospitalization)
  Sender: FDA-Public Use
  Company Number: None

PATIENT
  Age: 81 Year
  Sex: Male
  Weight: 56.246 kg

DRUGS (3)
  1. VANCOMYCIN [Suspect]
     Indication: UROSEPSIS
     Dosage: 1 G IV Q 12
     Route: 042
     Dates: start: 20050103, end: 20050115
  2. GENTAMICIN [Suspect]
     Indication: UROSEPSIS
     Dosage: 80 MG I
     Dates: start: 20050105, end: 20050108
  3. RIFAMPIN [Suspect]
     Indication: UROSEPSIS
     Dosage: 300 MG IV BID
     Route: 042
     Dates: start: 20050108, end: 20050115

REACTIONS (2)
  - DRUG TOXICITY [None]
  - RENAL FAILURE ACUTE [None]
